FAERS Safety Report 17878011 (Version 1)
Quarter: 2020Q2

REPORT INFORMATION
  Report Type: Spontaneous
  Country: US (occurrence: US)
  Receive Date: 20200609
  Receipt Date: 20200609
  Transmission Date: 20200714
  Serious: No
  Sender: FDA-Public Use
  Company Number: US-AMGEN-USASP2020090908

PATIENT
  Sex: Male

DRUGS (1)
  1. CORLANOR [Suspect]
     Active Substance: IVABRADINE HYDROCHLORIDE
     Indication: TACHYCARDIA
     Dosage: 5 MILLIGRAM, BID
     Route: 065
     Dates: start: 2018

REACTIONS (5)
  - Nausea [Unknown]
  - Chest pain [Unknown]
  - Headache [Unknown]
  - Chest discomfort [Unknown]
  - Off label use [Unknown]

NARRATIVE: CASE EVENT DATE: 2018
